FAERS Safety Report 8500628-3 (Version None)
Quarter: 2012Q3

REPORT INFORMATION
  Report Type: 
  Country: None (occurrence: None)
  Receive Date: 20120703
  Receipt Date: 20120703
  Transmission Date: 20120928
  Serious: Yes (Hospitalization)
  Sender: FDA-Public Use
  Company Number: None

PATIENT
  Age: 64 Year
  Sex: Male
  Weight: 66.5 kg

DRUGS (1)
  1. OXYBUTYNIN [Suspect]
     Indication: INCONTINENCE
     Dosage: MG PO
     Route: 048
     Dates: start: 20111214, end: 20111220

REACTIONS (5)
  - ANGER [None]
  - MENTAL STATUS CHANGES [None]
  - AGITATION [None]
  - CONFUSIONAL STATE [None]
  - HOMICIDAL IDEATION [None]
